FAERS Safety Report 25701622 (Version 1)
Quarter: 2025Q3

REPORT INFORMATION
  Report Type: Spontaneous
  Country: US (occurrence: US)
  Receive Date: 20250819
  Receipt Date: 20250819
  Transmission Date: 20251021
  Serious: No
  Sender: REGENERON
  Company Number: US-REGENERON PHARMACEUTICALS, INC.-2024-120791

PATIENT
  Sex: Female

DRUGS (1)
  1. PRALUENT [Suspect]
     Active Substance: ALIROCUMAB
     Indication: Product used for unknown indication
     Route: 058
     Dates: start: 2021

REACTIONS (5)
  - Visual impairment [Unknown]
  - Injection site bruising [Unknown]
  - Injection site bruising [Recovered/Resolved]
  - Injection site discomfort [Unknown]
  - Product delivery mechanism issue [Unknown]
